FAERS Safety Report 10742066 (Version 2)
Quarter: 2015Q1

REPORT INFORMATION
  Report Type: Spontaneous
  Country: FR (occurrence: FR)
  Receive Date: 20150127
  Receipt Date: 20150317
  Transmission Date: 20150721
  Serious: Yes (Hospitalization)
  Sender: FDA-Public Use
  Company Number: FR-PFIZER INC-2015031157

PATIENT
  Age: 43 Year
  Sex: Male

DRUGS (8)
  1. MYCOSTER [Suspect]
     Active Substance: CICLOPIROX\CICLOPIROX OLAMINE
     Indication: INTERTRIGO
     Dosage: UNK
     Route: 003
     Dates: start: 201412, end: 201412
  2. PYOSTACINE [Suspect]
     Active Substance: PRISTINAMYCIN
     Indication: INTERTRIGO
     Dosage: 1000 MG, 3X/DAY
     Route: 048
     Dates: start: 20141221, end: 20141224
  3. NERISONE [Concomitant]
     Active Substance: DIFLUCORTOLONE VALERATE
     Indication: INTERTRIGO
     Dosage: UNK
     Route: 003
     Dates: start: 20141202
  4. FUNGSTER [Concomitant]
     Active Substance: TERBINAFINE HYDROCHLORIDE
     Indication: INTERTRIGO
     Dosage: UNK
     Route: 003
     Dates: start: 201412, end: 201412
  5. ZITHROMAX [Suspect]
     Active Substance: AZITHROMYCIN DIHYDRATE
     Indication: CHLAMYDIAL INFECTION
     Dosage: 1000 MG, SINGLE
     Route: 048
     Dates: start: 20141221, end: 20141221
  6. TRIFLUCAN [Suspect]
     Active Substance: FLUCONAZOLE
     Indication: CANDIDA INFECTION
     Dosage: UNK
     Route: 048
     Dates: start: 201412, end: 20141223
  7. CYTEAL [Suspect]
     Active Substance: CHLORHEXIDINE GLUCONATE\CHLOROCRESOL\HEXAMIDINE DIISETHIONATE
     Dosage: UNK
     Route: 003
     Dates: start: 201412, end: 201412
  8. ORBENINE [Suspect]
     Active Substance: CLOXACILLIN SODIUM
     Indication: INTERTRIGO
     Dosage: UNK
     Route: 048
     Dates: start: 201412, end: 201412

REACTIONS (1)
  - Dermatitis contact [Recovered/Resolved]

NARRATIVE: CASE EVENT DATE: 201412
